FAERS Safety Report 24075461 (Version 1)
Quarter: 2024Q3

REPORT INFORMATION
  Report Type: Report from Study
  Country: US (occurrence: US)
  Receive Date: 20240710
  Receipt Date: 20240710
  Transmission Date: 20241016
  Serious: Yes (Other)
  Sender: ROCHE
  Company Number: US-ROCHE-3417403

PATIENT
  Age: 57 Year
  Sex: Male
  Weight: 94.35 kg

DRUGS (2)
  1. OCREVUS [Suspect]
     Active Substance: OCRELIZUMAB
     Indication: Primary progressive multiple sclerosis
     Dosage: ANOTHER 300MG INFUSION SCHEDULED FOR 15/SEP/2023. THE GOAL IS TO HAVE OCREVUS EVERY 6 MONTHS (DOSE N
     Route: 042
     Dates: start: 20230901
  2. METFORMIN [Concomitant]
     Active Substance: METFORMIN HYDROCHLORIDE
     Route: 048

REACTIONS (4)
  - Diabetes mellitus inadequate control [Not Recovered/Not Resolved]
  - Sepsis [Unknown]
  - Renal failure [Unknown]
  - Blood glucose increased [Unknown]

NARRATIVE: CASE EVENT DATE: 20230902
